FAERS Safety Report 5144717-2 (Version None)
Quarter: 2006Q4

REPORT INFORMATION
  Report Type: 
  Country: None (occurrence: None)
  Receive Date: 20061031
  Receipt Date: 20061022
  Transmission Date: 20070319
  Serious: No
  Sender: FDA-Public Use
  Company Number: 20063276

PATIENT
  Sex: Female

DRUGS (1)
  1. LIORESAL [Suspect]
     Indication: MUSCLE SPASTICITY
     Dosage: DAILY, INTRATHECAL
     Route: 037

REACTIONS (1)
  - LABORATORY TEST ABNORMAL [None]
